FAERS Safety Report 7703880-7 (Version None)
Quarter: 2011Q3

REPORT INFORMATION
  Report Type: 
  Country: None (occurrence: None)
  Receive Date: 20110823
  Receipt Date: 20110809
  Transmission Date: 20111222
  Serious: Yes (Hospitalization)
  Sender: FDA-Public Use
  Company Number: US-ELI_LILLY_AND_COMPANY-US201011006188

PATIENT
  Sex: Female
  Weight: 68.934 kg

DRUGS (8)
  1. FORTEO [Suspect]
     Dosage: 20 UG, QD
  2. NAMENDA [Concomitant]
  3. PRAVASTATIN [Concomitant]
  4. FORTEO [Suspect]
     Indication: OSTEOPOROSIS
     Dosage: 20 UG, DAILY (1/D)
     Dates: start: 20101117
  5. FORTEO [Suspect]
     Dosage: 20 UG, QD
  6. AVAPRO [Concomitant]
  7. FORTEO [Suspect]
     Dosage: 20 UG, QD
  8. VITAMIN D [Concomitant]

REACTIONS (8)
  - MEDICAL DEVICE COMPLICATION [None]
  - IMPAIRED HEALING [None]
  - DIZZINESS [None]
  - BACK PAIN [None]
  - ARTHRALGIA [None]
  - HEARING IMPAIRED [None]
  - OFF LABEL USE [None]
  - EAR INFECTION [None]
